FAERS Safety Report 20515590 (Version 2)
Quarter: 2022Q2

REPORT INFORMATION
  Report Type: Spontaneous
  Country: FR (occurrence: FR)
  Receive Date: 20220224
  Receipt Date: 20220429
  Transmission Date: 20220720
  Serious: Yes (Hospitalization, Other)
  Sender: FDA-Public Use
  Company Number: FR-AFSSAPS-PV20220210

PATIENT
  Age: 67 Year
  Sex: Female
  Weight: 59 kg

DRUGS (13)
  1. PREDNISONE [Suspect]
     Active Substance: PREDNISONE
     Indication: Product used for unknown indication
     Dosage: 40 MILLIGRAM, ONCE A DAY
     Route: 048
  2. AMLODIPINE BESYLATE [Suspect]
     Active Substance: AMLODIPINE BESYLATE
     Indication: Product used for unknown indication
     Dosage: 5 MILLIGRAM, ONCE A DAY
     Route: 048
  3. BACTRIM [Suspect]
     Active Substance: SULFAMETHOXAZOLE\TRIMETHOPRIM
     Indication: Infection prophylaxis
     Dosage: 1 DOSAGE FORM, FOUR TIMES/DAY
     Route: 048
  4. BRAFTOVI [Suspect]
     Active Substance: ENCORAFENIB
     Indication: Lung adenocarcinoma
     Dosage: UNK
     Route: 048
     Dates: start: 20210525
  5. PROGESTERONE [Suspect]
     Active Substance: PROGESTERONE
     Indication: Menopausal symptoms
     Dosage: 1 DOSAGE FORM, ONCE A DAY
     Route: 048
  6. MEKTOVI [Suspect]
     Active Substance: BINIMETINIB
     Indication: Lung adenocarcinoma
     Dosage: UNK
     Route: 048
     Dates: start: 20210525
  7. POTASSIUM CHLORIDE [Concomitant]
     Active Substance: POTASSIUM CHLORIDE
     Indication: Hypokalaemia
     Dosage: 2 DOSAGE FORM, ONCE A DAY
     Route: 048
  8. ESTRADIOL [Concomitant]
     Active Substance: ESTRADIOL
     Indication: Menopausal symptoms
     Dosage: 1 DOSAGE FORM, ONCE A DAY
     Route: 003
  9. IXPRIM [Concomitant]
     Active Substance: ACETAMINOPHEN\TRAMADOL HYDROCHLORIDE
     Indication: Pain
     Dosage: 1 DOSAGE FORM, AS NECESSARY
     Route: 048
  10. ESOMEPRAZOLE [Concomitant]
     Active Substance: ESOMEPRAZOLE
     Indication: Peptic ulcer
     Dosage: 20 MILLIGRAM, ONCE A DAY
     Route: 048
  11. ALPHAGAN P [Concomitant]
     Active Substance: BRIMONIDINE TARTRATE
     Indication: Glaucoma
     Dosage: 2 GTT DROPS, ONCE A DAY
     Route: 031
  12. LATANOPROST [Concomitant]
     Active Substance: LATANOPROST
     Indication: Glaucoma
     Dosage: 1 GTT DROPS, ONCE A DAY
     Route: 031
  13. CARTEOLOL HYDROCHLORIDE [Concomitant]
     Active Substance: CARTEOLOL HYDROCHLORIDE
     Indication: Glaucoma
     Dosage: 1 GTT DROPS, ONCE A DAY
     Route: 031

REACTIONS (1)
  - Pulmonary hypertension [Not Recovered/Not Resolved]

NARRATIVE: CASE EVENT DATE: 20220111
